FAERS Safety Report 7306249-2 (Version None)
Quarter: 2011Q1

REPORT INFORMATION
  Report Type: 
  Country: None (occurrence: None)
  Receive Date: 20110222
  Receipt Date: 20110214
  Transmission Date: 20110831
  Serious: Yes (Hospitalization)
  Sender: FDA-Public Use
  Company Number: US-B.I. PHARMACEUTICALS,INC./RIDGEFIELD-2011-BP-00731BP

PATIENT
  Age: 85 Year
  Sex: Female
  Weight: 53.3 kg

DRUGS (6)
  1. ADVAIR HFA [Concomitant]
  2. NORVASC [Concomitant]
     Dosage: 5 MG
  3. THEOPHYLLINE [Concomitant]
     Dosage: 400 MG
  4. VENTOLIN HFA [Concomitant]
     Dosage: 2 PUF
  5. PRADAXA [Suspect]
     Indication: ATRIAL FIBRILLATION
     Dosage: 300 MG
     Dates: start: 20101219, end: 20101228
  6. BISOPROLOL [Concomitant]
     Dosage: 2.5 MG

REACTIONS (1)
  - RECTAL HAEMORRHAGE [None]
